FAERS Safety Report 25728211 (Version 1)
Quarter: 2025Q3

REPORT INFORMATION
  Report Type: Spontaneous
  Country: IL (occurrence: IL)
  Receive Date: 20250826
  Receipt Date: 20250826
  Transmission Date: 20251020
  Serious: Yes (Hospitalization, Other)
  Sender: BRISTOL-MYERS SQUIBB COMPANY
  Company Number: IL-BRISTOL-MYERS SQUIBB COMPANY-2025-099297

PATIENT
  Age: 91 Year
  Sex: Female

DRUGS (1)
  1. ELIQUIS [Suspect]
     Active Substance: APIXABAN
     Indication: Pulmonary embolism
     Dates: start: 20250611

REACTIONS (7)
  - Rectal haemorrhage [Unknown]
  - Haemoglobin decreased [Unknown]
  - Tremor [Unknown]
  - Hypertension [Unknown]
  - Renal impairment [Unknown]
  - Hepatic function abnormal [Unknown]
  - Cachexia [Unknown]
